FAERS Safety Report 16034016 (Version 1)
Quarter: 2019Q1

REPORT INFORMATION
  Report Type: Spontaneous
  Country: US (occurrence: US)
  Receive Date: 20190305
  Receipt Date: 20190305
  Transmission Date: 20190418
  Serious: No
  Sender: FDA-Public Use
  Company Number: US-IMPAX LABORATORIES, LLC-2018-IPXL-02580

PATIENT
  Age: 72 Year
  Sex: Male
  Weight: 77 kg

DRUGS (6)
  1. RYTARY [Suspect]
     Active Substance: CARBIDOPA\LEVODOPA
     Indication: PARKINSON^S DISEASE
     Dosage: 36.25/145 MG, THREE CAPSULES, THREE TIMES A DAY (AT 6AM, 11AM, 4PM)
     Route: 048
     Dates: start: 2018, end: 2018
  2. RYTARY [Suspect]
     Active Substance: CARBIDOPA\LEVODOPA
     Dosage: 36.25/145 MG, FOUR CAPSULES, THREE TIMES A DAY (AT 6AM, 10 AM, 6 PM)
     Route: 048
     Dates: start: 2018
  3. CARBIDOPA/LEVODOPA [Concomitant]
     Active Substance: CARBIDOPA\LEVODOPA
     Indication: PARKINSON^S DISEASE
     Dosage: 25-100 MG, AT 2 PM
     Route: 065
     Dates: start: 2018
  4. MIDODRINE [Concomitant]
     Active Substance: MIDODRINE
     Indication: HYPOTENSION
     Dosage: UNK
     Route: 048
  5. FLORINEF ACETATE [Concomitant]
     Active Substance: FLUDROCORTISONE ACETATE
     Indication: HYPOTENSION
     Dosage: UNK
     Route: 048
  6. FINASTERIDE. [Concomitant]
     Active Substance: FINASTERIDE
     Indication: PROSTATIC DISORDER
     Dosage: UNK
     Route: 048

REACTIONS (3)
  - Hypokinesia [Recovering/Resolving]
  - Tremor [Recovering/Resolving]
  - Therapeutic response shortened [Recovering/Resolving]

NARRATIVE: CASE EVENT DATE: 2018
